FAERS Safety Report 23662421 (Version 1)
Quarter: 2024Q1

REPORT INFORMATION
  Report Type: Spontaneous
  Country: FR (occurrence: FR)
  Receive Date: 20240322
  Receipt Date: 20240322
  Transmission Date: 20240410
  Serious: Yes (Hospitalization)
  Sender: FDA-Public Use
  Company Number: None

PATIENT
  Age: 30 Year
  Sex: Male

DRUGS (7)
  1. OLANZAPINE [Suspect]
     Active Substance: OLANZAPINE
  2. OXAZEPAM [Suspect]
     Active Substance: OXAZEPAM
  3. LOXAPINE [Suspect]
     Active Substance: LOXAPINE
  4. SERTRALINE HYDROCHLORIDE [Suspect]
     Active Substance: SERTRALINE HYDROCHLORIDE
  5. COCAINE [Suspect]
     Active Substance: COCAINE
  6. ALCOHOL [Suspect]
     Active Substance: ALCOHOL
  7. COCAETHYLENE [Suspect]
     Active Substance: COCAETHYLENE

REACTIONS (4)
  - Aggression [Unknown]
  - Tachycardia [Unknown]
  - Drug use disorder [Unknown]
  - Substance use disorder [Unknown]

NARRATIVE: CASE EVENT DATE: 20231014
